FAERS Safety Report 16947458 (Version 1)
Quarter: 2019Q4

REPORT INFORMATION
  Report Type: Spontaneous
  Country: AL (occurrence: AL)
  Receive Date: 20191022
  Receipt Date: 20191022
  Transmission Date: 20200122
  Serious: Yes (Other)
  Sender: FDA-Public Use
  Company Number: AL-FRESENIUS KABI-FK201911683

PATIENT
  Age: 33 Year
  Sex: Female

DRUGS (1)
  1. LIDOCAINE 2% (MANUFACTURER UNKNOWN) [Suspect]
     Active Substance: LIDOCAINE
     Indication: SKIN TEST
     Dosage: DILUTED TO 1:100, 1:10
     Route: 023

REACTIONS (1)
  - Anaphylactic reaction [Recovered/Resolved]
